FAERS Safety Report 10164524 (Version 1)
Quarter: 2014Q2

REPORT INFORMATION
  Report Type: Spontaneous
  Country: US (occurrence: US)
  Receive Date: 20140510
  Receipt Date: 20140510
  Transmission Date: 20141212
  Serious: No
  Sender: FDA-Public Use
  Company Number: US-BRISTOL-MYERS SQUIBB COMPANY-20090429

PATIENT
  Age: 61 Year
  Sex: Female
  Weight: 70.29 kg

DRUGS (2)
  1. BYDUREON [Suspect]
  2. LISINOPRIL [Concomitant]

REACTIONS (4)
  - Injection site pain [Unknown]
  - Underdose [Unknown]
  - Weight decreased [Unknown]
  - Product quality issue [Unknown]
